FAERS Safety Report 10257446 (Version 1)
Quarter: 2014Q2

REPORT INFORMATION
  Report Type: Spontaneous
  Country: US (occurrence: US)
  Receive Date: 20140625
  Receipt Date: 20140625
  Transmission Date: 20141212
  Serious: No
  Sender: FDA-Public Use
  Company Number: US-BAYER-2014-095190

PATIENT
  Sex: Male

DRUGS (4)
  1. MAGNEVIST [Suspect]
     Indication: COMPUTERISED TOMOGRAM
     Dosage: 20 ML, ONCE
     Route: 042
     Dates: start: 20111111, end: 20111111
  2. MAGNEVIST [Suspect]
     Indication: IMAGING PROCEDURE
     Dosage: 20 ML, ONCE
     Route: 042
     Dates: start: 20120423, end: 20120423
  3. MAGNEVIST [Suspect]
     Indication: GASTROINTESTINAL DISORDER
  4. MAGNEVIST [Suspect]
     Indication: PROCTALGIA

REACTIONS (1)
  - Gout [None]
